FAERS Safety Report 24568080 (Version 1)
Quarter: 2024Q4

REPORT INFORMATION
  Report Type: Other
  Country: CA (occurrence: CA)
  Receive Date: 20241031
  Receipt Date: 20241031
  Transmission Date: 20250114
  Serious: Yes (Other)
  Sender: GLENMARK
  Company Number: CA-GLENMARK PHARMACEUTICALS-2024GMK095060

PATIENT

DRUGS (2)
  1. RYALTRIS [Suspect]
     Active Substance: MOMETASONE FUROATE MONOHYDRATE\OLOPATADINE HYDROCHLORIDE
     Indication: Upper-airway cough syndrome
     Dosage: 4 DOSAGE FORM, 2 EVERY 1 DAYS
     Route: 045
  2. RYALTRIS [Suspect]
     Active Substance: MOMETASONE FUROATE MONOHYDRATE\OLOPATADINE HYDROCHLORIDE
     Indication: Paranasal sinus inflammation

REACTIONS (3)
  - Ear discomfort [Recovered/Resolved]
  - Ear swelling [Recovered/Resolved]
  - Product use in unapproved indication [Unknown]
